FAERS Safety Report 8478841-3 (Version None)
Quarter: 2012Q2

REPORT INFORMATION
  Report Type: 
  Country: None (occurrence: None)
  Receive Date: 20120629
  Receipt Date: 20120621
  Transmission Date: 20120825
  Serious: Yes (Death, Hospitalization)
  Sender: FDA-Public Use
  Company Number: FR-TEVA-2011005192

PATIENT
  Sex: Female
  Weight: 58 kg

DRUGS (10)
  1. BENDAMUSTINE HYDROCHLORIDE [Suspect]
     Route: 041
     Dates: start: 20110711, end: 20110712
  2. ATARAX [Concomitant]
     Dates: start: 20110830
  3. BENDAMUSTINE HYDROCHLORIDE [Suspect]
     Indication: ADULT T-CELL LYMPHOMA/LEUKAEMIA
     Route: 041
     Dates: start: 20110421, end: 20110422
  4. ALLOPURINOL [Concomitant]
     Dates: start: 20110830
  5. PANTOPRAZOLE SODIUM [Concomitant]
     Dates: start: 20110830, end: 20110905
  6. BENDAMUSTINE HYDROCHLORIDE [Suspect]
     Route: 041
     Dates: start: 20110608, end: 20110609
  7. BENDAMUSTINE HYDROCHLORIDE [Suspect]
     Route: 041
     Dates: start: 20110808, end: 20110809
  8. AMLODIPINE BESYLATE [Concomitant]
     Dates: start: 20110830
  9. BENDAMUSTINE HYDROCHLORIDE [Suspect]
     Route: 041
     Dates: start: 20110518, end: 20110519
  10. VALACYCLOVIR HYDROCHLORIDE [Concomitant]
     Dates: start: 20110830, end: 20110905

REACTIONS (4)
  - ADULT T-CELL LYMPHOMA/LEUKAEMIA [None]
  - INFECTION [None]
  - PANCYTOPENIA [None]
  - CEREBRAL HAEMORRHAGE [None]
